FAERS Safety Report 4485040-9 (Version None)
Quarter: 2004Q3

REPORT INFORMATION
  Report Type: 
  Country: None (occurrence: None)
  Receive Date: 20040921
  Receipt Date: 20031008
  Transmission Date: 20050211
  Serious: Yes (Death)
  Sender: FDA-Public Use
  Company Number: 163-20785-03060871

PATIENT
  Age: 56 Year
  Sex: Male

DRUGS (10)
  1. THALOMID [Suspect]
     Indication: MULTIPLE MYELOMA
     Dosage: 200 MG, QD, ORAL
     Route: 048
     Dates: start: 19990316, end: 20011101
  2. PS-341 (SOLUTION) [Suspect]
     Indication: MULTIPLE MYELOMA
     Dosage: 1 MG/M2 DAY 1, 4, 8, 11 OF 21 DAY CYCLE, INTRAVENOUS
     Route: 042
     Dates: start: 20021108, end: 20021213
  3. VINCRISTINE [Concomitant]
  4. ADRIAMYCIN PFS [Concomitant]
  5. DEXANETHASONE (DEXAMETHASONE) [Concomitant]
  6. CYCLOPHOSPHAMIDE [Concomitant]
  7. CISPLATIN [Concomitant]
  8. AUTOLOGOUS PERIPHERAL BLOOD STEM CELL TRANSPLANTS [Concomitant]
  9. MELPHALAN (MELPHALAN) [Concomitant]
  10. ETOPOSIDE [Concomitant]

REACTIONS (2)
  - DEATH [None]
  - DISEASE PROGRESSION [None]
